FAERS Safety Report 8923010 (Version 2)
Quarter: 2012Q4

REPORT INFORMATION
  Report Type: Report from Study
  Country: US (occurrence: US)
  Receive Date: 20121123
  Receipt Date: 20121130
  Transmission Date: 20130627
  Serious: Yes (Hospitalization)
  Sender: FDA-Public Use
  Company Number: US-JNJFOC-20121108916

PATIENT
  Age: 33 Year
  Sex: Female
  Weight: 63.96 kg

DRUGS (2)
  1. USTEKINUMAB [Suspect]
     Indication: PSORIASIS
     Route: 058
     Dates: start: 20120210, end: 20120210
  2. CORTICOSTEROIDS [Concomitant]

REACTIONS (3)
  - Periorbital abscess [Recovered/Resolved]
  - Staphylococcus test [Recovered/Resolved]
  - Cellulitis [Recovered/Resolved]
